FAERS Safety Report 18990237 (Version 3)
Quarter: 2021Q2

REPORT INFORMATION
  Report Type: Spontaneous
  Country: US (occurrence: US)
  Receive Date: 20210310
  Receipt Date: 20210414
  Transmission Date: 20210717
  Serious: Yes (Death, Hospitalization, Other)
  Sender: FDA-Public Use
  Company Number: US-UNITED THERAPEUTICS-UNT-2021-004140

PATIENT
  Age: 78 Year
  Sex: Female
  Weight: 81.63 kg

DRUGS (5)
  1. ORENITRAM [Suspect]
     Active Substance: TREPROSTINIL
     Indication: PULMONARY ARTERIAL HYPERTENSION
     Dosage: UNK
     Route: 048
  2. ORENITRAM [Suspect]
     Active Substance: TREPROSTINIL
     Indication: PULMONARY ARTERIAL HYPERTENSION
     Dosage: UNK
     Route: 048
     Dates: start: 20191226
  3. ORENITRAM [Suspect]
     Active Substance: TREPROSTINIL
     Dosage: 3.5 MG, Q8H
     Route: 048
  4. WARFARIN [Concomitant]
     Active Substance: WARFARIN
     Indication: PRODUCT USED FOR UNKNOWN INDICATION
     Dosage: UNK
     Route: 065
  5. ORENITRAM [Suspect]
     Active Substance: TREPROSTINIL
     Indication: PULMONARY ARTERIAL HYPERTENSION
     Dosage: UNK
     Route: 048

REACTIONS (6)
  - Product dose omission issue [Unknown]
  - Pulmonary arterial hypertension [Fatal]
  - Asthenia [Unknown]
  - Dyspnoea [Unknown]
  - Gait disturbance [Unknown]
  - Fall [Unknown]

NARRATIVE: CASE EVENT DATE: 202102
